FAERS Safety Report 8409497-3 (Version None)
Quarter: 2012Q2

REPORT INFORMATION
  Report Type: 
  Country: None (occurrence: None)
  Receive Date: 20120323
  Receipt Date: 20101230
  Transmission Date: 20120825
  Serious: Yes (Hospitalization)
  Sender: FDA-Public Use
  Company Number: 163-21880-11010224

PATIENT
  Age: 66 Year
  Sex: Male

DRUGS (2)
  1. REVLIMID [Suspect]
     Indication: MULTIPLE MYELOMA
     Dosage: 10 MG, DAILY FOR 21 DAYS; THEN 7 DAYS OFF, PO
     Route: 048
     Dates: start: 20101222
  2. REVLIMID [Suspect]
     Indication: MULTIPLE MYELOMA
     Dosage: 10 MG, DAILY FOR 21 DAYS; THEN 7 DAYS OFF, PO
     Route: 048
     Dates: start: 20100910

REACTIONS (4)
  - PNEUMONIA BACTERIAL [None]
  - VOMITING [None]
  - COUGH [None]
  - PYREXIA [None]
